FAERS Safety Report 8322629-0 (Version None)
Quarter: 2012Q2

REPORT INFORMATION
  Report Type: 
  Country: None (occurrence: None)
  Receive Date: 20120430
  Receipt Date: 20120421
  Transmission Date: 20120825
  Serious: Yes (Hospitalization)
  Sender: FDA-Public Use
  Company Number: US-BAYER-2011-080142

PATIENT
  Age: 39 Year
  Sex: Female
  Weight: 91 kg

DRUGS (10)
  1. YAZ [Suspect]
     Indication: PREMENSTRUAL SYNDROME
  2. YAZ [Suspect]
     Indication: CONTRACEPTION
     Dosage: UNK
     Route: 048
     Dates: start: 20090401, end: 20091001
  3. ZOCOR [Concomitant]
     Indication: BLOOD CHOLESTEROL INCREASED
     Dosage: UNK
     Dates: start: 20060101
  4. ORETIC [Concomitant]
     Dosage: 25 MG, UNK
     Route: 048
  5. ZYRTEC [Concomitant]
     Indication: MULTIPLE ALLERGIES
     Dosage: 10 MG, UNK
     Route: 048
  6. CABERGOLINE [Concomitant]
     Dosage: 0.5 MG, UNK
     Route: 048
  7. NASONEX [Concomitant]
     Indication: MULTIPLE ALLERGIES
     Route: 045
  8. VALTREX [Concomitant]
     Dosage: 500 MG, UNK
     Route: 048
  9. LISINOPRIL [Concomitant]
     Indication: HYPERTENSION
     Dosage: UNK
     Dates: start: 20060101
  10. HYDROCHLOROTHIAZIDE [Concomitant]
     Indication: HYPERTENSION
     Dosage: UNK
     Dates: start: 20060101

REACTIONS (5)
  - CHEST PAIN [None]
  - PULMONARY EMBOLISM [None]
  - PAIN [None]
  - EMOTIONAL DISTRESS [None]
  - DYSPNOEA [None]
